FAERS Safety Report 5774202-6 (Version None)
Quarter: 2008Q2

REPORT INFORMATION
  Report Type: 
  Country: None (occurrence: None)
  Receive Date: 20080601
  Receipt Date: 20080314
  Transmission Date: 20081010
  Serious: No
  Sender: FDA-Public Use
  Company Number: US200803003419

PATIENT
  Age: 37 Year

DRUGS (3)
  1. BYETTA [Suspect]
     Dosage: SUBCUTANEOUS
     Route: 058
  2. DRUG USED IN DIABETES [Concomitant]
  3. LANTUS [Concomitant]

REACTIONS (1)
  - MALAISE [None]
